FAERS Safety Report 20643588 (Version 2)
Quarter: 2022Q2

REPORT INFORMATION
  Report Type: Spontaneous
  Country: AT (occurrence: AT)
  Receive Date: 20220328
  Receipt Date: 20220406
  Transmission Date: 20220721
  Serious: Yes (Other)
  Sender: FDA-Public Use
  Company Number: AT-JNJFOC-20220339104

PATIENT
  Age: 44 Year
  Sex: Male
  Weight: 65 kg

DRUGS (7)
  1. SPRAVATO [Suspect]
     Active Substance: ESKETAMINE
     Indication: Depression
     Dates: start: 20220308, end: 20220311
  2. ESKETAMINE [Suspect]
     Active Substance: ESKETAMINE
     Indication: Product used for unknown indication
     Dosage: 15 MG SHORT INFUSIONS OVER SEVERAL WEEKS (1 OR 2 TIMES PER WEEK)
     Route: 042
  3. MILNACIPRAN [Concomitant]
     Active Substance: MILNACIPRAN
     Indication: Antidepressant therapy
     Dosage: 2X25MG MORNING AND EVENING
     Route: 065
  4. TIANEPTINE [Concomitant]
     Active Substance: TIANEPTINE
     Indication: Restlessness
     Dosage: 1X25MG IN THE MORNING
     Route: 065
  5. MAGNESIUM [Concomitant]
     Active Substance: MAGNESIUM
     Indication: Muscle spasms
     Dosage: 1X1 IN THE MORNING
     Route: 065
  6. MELATONIN [Concomitant]
     Active Substance: MELATONIN
     Indication: Sleep disorder
     Dosage: 1X1 AT NIGHT
     Route: 065
  7. MELPERONE HYDROCHLORIDE [Concomitant]
     Active Substance: MELPERONE HYDROCHLORIDE
     Indication: Sleep disorder
     Dosage: 1-2 PER DAY IF NECESSARY AT NIGHT (RECEIVED 2X25MG THE DAY BEFORE THE EVENT)
     Route: 065

REACTIONS (3)
  - Asphyxia [Recovered/Resolved]
  - Laryngospasm [Recovered/Resolved]
  - COVID-19 [Unknown]

NARRATIVE: CASE EVENT DATE: 20220301
